FAERS Safety Report 7041449-0 (Version None)
Quarter: 2010Q4

REPORT INFORMATION
  Report Type: 
  Country: None (occurrence: None)
  Receive Date: 20101008
  Receipt Date: 20100921
  Transmission Date: 20110411
  Serious: Yes (Hospitalization, Disabling)
  Sender: FDA-Public Use
  Company Number: CTI_01229_2010

PATIENT
  Age: 72 Year
  Sex: Male

DRUGS (2)
  1. MEIACT (MEIACT MS (CEFDITOREN PIVOXIL) ) 300 MG (NOT SPECIFIED) [Suspect]
     Indication: ANTIBIOTIC PROPHYLAXIS
     Dosage: (DF ORAL)
     Route: 048
     Dates: start: 20100701
  2. LOXONIN (LOXONIN (IOXOPROFEN SODIUM HYDRATE) ) 180 MG (NOT SPECIFIED) [Suspect]
     Indication: ANALGESIC THERAPY
     Dosage: (DF ORAL)
     Route: 048
     Dates: start: 20100701

REACTIONS (7)
  - ALANINE AMINOTRANSFERASE INCREASED [None]
  - ASPARTATE AMINOTRANSFERASE INCREASED [None]
  - BLOOD ALKALINE PHOSPHATASE INCREASED [None]
  - BLOOD BILIRUBIN INCREASED [None]
  - BLOOD LACTATE DEHYDROGENASE INCREASED [None]
  - DECREASED APPETITE [None]
  - LIVER DISORDER [None]
